FAERS Safety Report 7902683-8 (Version None)
Quarter: 2011Q4

REPORT INFORMATION
  Report Type: 
  Country: None (occurrence: None)
  Receive Date: 20111108
  Receipt Date: 20111031
  Transmission Date: 20120403
  Serious: Yes (Disabling)
  Sender: FDA-Public Use
  Company Number: JP-MERCK-1109USA02528

PATIENT
  Age: 70 Year
  Sex: Female

DRUGS (1)
  1. PRIMAXIN [Suspect]
     Indication: CELLULITIS
     Route: 041
     Dates: start: 20110919, end: 20110920

REACTIONS (1)
  - DEAFNESS UNILATERAL [None]
